FAERS Safety Report 5663242-3 (Version None)
Quarter: 2008Q1

REPORT INFORMATION
  Report Type: 
  Country: None (occurrence: None)
  Receive Date: 20080313
  Receipt Date: 20080305
  Transmission Date: 20080703
  Serious: Yes (Hospitalization, Disabling, Other)
  Sender: FDA-Public Use
  Company Number: JP-BRISTOL-MYERS SQUIBB COMPANY-14085195

PATIENT
  Age: 73 Year
  Sex: Male

DRUGS (10)
  1. TAXOL [Suspect]
     Indication: NON-SMALL CELL LUNG CANCER
     Dosage: STARTED ON 11-AUG-2007
     Route: 041
     Dates: start: 20080117, end: 20080131
  2. PARAPLATIN [Suspect]
     Indication: NON-SMALL CELL LUNG CANCER
     Dosage: STARTED ON 11-AUG-2007
     Route: 041
     Dates: start: 20080117, end: 20080117
  3. DECADRON [Concomitant]
     Route: 041
     Dates: start: 20070811, end: 20080131
  4. ZANTAC [Concomitant]
     Route: 041
     Dates: start: 20070811, end: 20080131
  5. KYTRIL [Concomitant]
     Route: 041
     Dates: start: 20070811, end: 20080131
  6. NEOLAMIN [Concomitant]
     Route: 042
     Dates: start: 20070811, end: 20080131
  7. RESTAMIN [Concomitant]
     Route: 048
     Dates: start: 20070811, end: 20080131
  8. TAMSULOSIN HCL [Concomitant]
     Route: 048
     Dates: start: 20070219
  9. RINDERON [Concomitant]
     Route: 048
     Dates: start: 20070822, end: 20071023
  10. HALCION [Concomitant]
     Route: 048
     Dates: start: 20070129

REACTIONS (3)
  - HYDRONEPHROSIS [None]
  - RASH [None]
  - URETERIC STENOSIS [None]
